FAERS Safety Report 22107706 (Version 1)
Quarter: 2023Q1

REPORT INFORMATION
  Report Type: Spontaneous
  Country: GB (occurrence: GB)
  Receive Date: 20230317
  Receipt Date: 20230317
  Transmission Date: 20230418
  Serious: Yes (Disabling)
  Sender: FDA-Public Use
  Company Number: None

PATIENT
  Age: 68 Year
  Sex: Female
  Weight: 78 kg

DRUGS (10)
  1. CLARITHROMYCIN [Suspect]
     Active Substance: CLARITHROMYCIN
     Indication: Product used for unknown indication
     Dosage: 1000 MILLIGRAM DAILY; EVERY 12 HOURS FOR
     Route: 065
     Dates: start: 20220329
  2. ADCAL [Concomitant]
     Indication: Product used for unknown indication
     Dosage: 2 DOSAGE FORMS DAILY; LUNCHTIME AND TEATIME,
     Dates: start: 20200109
  3. ALENDRONIC ACID [Concomitant]
     Active Substance: ALENDRONIC ACID
     Indication: Product used for unknown indication
     Dosage: TAKE ONE TABLET ONCE WEEKLY. SWALLOW WHOLE ON A.;
     Route: 048
     Dates: start: 20200109
  4. CETIRIZINE [Concomitant]
     Active Substance: CETIRIZINE HYDROCHLORIDE
     Indication: Pruritus
     Dosage: 1 DOSAGE FORMS DAILY; IF NEEDED FOR ITCH;
     Dates: start: 20220329, end: 20220426
  5. FEXOFENADINE [Concomitant]
     Active Substance: FEXOFENADINE HYDROCHLORIDE
     Indication: Product used for unknown indication
     Dosage: 1 DOSAGE FORMS DAILY; BEFORE FOOD;
     Dates: start: 20220527
  6. BETAMETHASONE VALERATE\FUSIDIC ACID [Concomitant]
     Active Substance: BETAMETHASONE VALERATE\FUSIDIC ACID
     Indication: Product used for unknown indication
     Dosage: 2 DOSAGE FORMS DAILY; APPLY TWICE DAILY;
     Dates: start: 20220526
  7. FUSIDIC ACID [Concomitant]
     Active Substance: FUSIDIC ACID
     Indication: Product used for unknown indication
     Dosage: (AMBER 3) APPLY TO THE AFFECTED AREA THREE TIME...
     Dates: start: 20220527
  8. PREDNISOLONE [Concomitant]
     Active Substance: PREDNISOLONE
     Indication: Product used for unknown indication
     Dosage: 1 DOSAGE FORMS DAILY; ONE DAILY;
     Dates: start: 20200109
  9. ACETAMINOPHEN\CODEINE PHOSPHATE [Concomitant]
     Active Substance: ACETAMINOPHEN\CODEINE PHOSPHATE
     Indication: Product used for unknown indication
     Dosage: (CO-CODAMOL 30/500) ONE OR TWO CAPLETS TO BE TA...
     Dates: start: 20200109
  10. MINERAL OIL\PARAFFIN [Concomitant]
     Active Substance: MINERAL OIL\PARAFFIN
     Indication: Product used for unknown indication
     Dosage: APPLY GENTLY IN DOWNWARD STROKES IN THE DIRECTI...
     Dates: start: 20210517

REACTIONS (1)
  - Chest pain [Recovered/Resolved]
